FAERS Safety Report 8610290-7 (Version None)
Quarter: 2012Q3

REPORT INFORMATION
  Report Type: 
  Country: None (occurrence: None)
  Receive Date: 20120822
  Receipt Date: 20120814
  Transmission Date: 20120928
  Serious: Yes (Other)
  Sender: FDA-Public Use
  Company Number: US-ACCORD-014444

PATIENT
  Sex: Male
  Weight: 75 kg

DRUGS (2)
  1. FINASTERIDE [Suspect]
  2. CARDURA [Suspect]

REACTIONS (2)
  - PENILE CURVATURE [None]
  - PENIS DISORDER [None]
